FAERS Safety Report 17934833 (Version 1)
Quarter: 2020Q2

REPORT INFORMATION
  Report Type: Spontaneous
  Country: DK (occurrence: DK)
  Receive Date: 20200624
  Receipt Date: 20200624
  Transmission Date: 20200714
  Serious: Yes (Hospitalization)
  Sender: FDA-Public Use
  Company Number: DK-PFIZER INC-2020238824

PATIENT
  Age: 76 Year
  Sex: Male

DRUGS (4)
  1. REVLIMID [Concomitant]
     Active Substance: LENALIDOMIDE
     Indication: PLASMA CELL MYELOMA
     Dosage: 25 MG, 1X/DAY
     Route: 048
     Dates: start: 20190103, end: 20190418
  2. LIPISTAD [Concomitant]
     Indication: HYPERCHOLESTEROLAEMIA
     Dosage: 40 MG, 1X/DAY
     Route: 048
     Dates: start: 20180219
  3. HJERTEMAGNYL [ACETYLSALICYLIC ACID] [Concomitant]
     Active Substance: ASPIRIN
     Indication: THROMBOSIS PROPHYLAXIS
     Dosage: 75 MG, 1X/DAY
     Route: 048
     Dates: start: 20180218
  4. FRAGMIN [Suspect]
     Active Substance: DALTEPARIN SODIUM
     Indication: THROMBOSIS PROPHYLAXIS
     Dosage: 15 IU, 1X/DAY
     Dates: start: 20190103, end: 20190503

REACTIONS (13)
  - Abdominal pain lower [Unknown]
  - Haematoma muscle [Recovered/Resolved with Sequelae]
  - Rhabdomyolysis [Unknown]
  - Arthralgia [Unknown]
  - Epistaxis [Recovered/Resolved]
  - Sensory disturbance [Unknown]
  - Product selection error [Unknown]
  - Walking disability [Unknown]
  - Muscle haemorrhage [Recovered/Resolved with Sequelae]
  - Muscular weakness [Unknown]
  - Nerve injury [Unknown]
  - Off label use [Unknown]
  - Renal failure [Recovering/Resolving]

NARRATIVE: CASE EVENT DATE: 2019
